FAERS Safety Report 6494481-X (Version None)
Quarter: 2009Q4

REPORT INFORMATION
  Report Type: 
  Country: None (occurrence: None)
  Receive Date: 20091214
  Receipt Date: 20090224
  Transmission Date: 20100525
  Serious: No
  Sender: FDA-Public Use
  Company Number: US-BRISTOL-MYERS SQUIBB COMPANY-14517734

PATIENT
  Age: 65 Year
  Sex: Female
  Weight: 82 kg

DRUGS (7)
  1. ABILIFY [Suspect]
     Indication: BIPOLAR DISORDER
     Dates: start: 20090101
  2. ABILIFY [Suspect]
     Indication: DEPRESSION
     Dates: start: 20090101
  3. ABILIFY [Suspect]
     Indication: SUICIDAL IDEATION
     Dates: start: 20090101
  4. CYMBALTA [Concomitant]
  5. CELEBREX [Concomitant]
  6. AGGRENOX [Concomitant]
  7. LAMICTAL [Concomitant]

REACTIONS (3)
  - DRY EYE [None]
  - EYELID MARGIN CRUSTING [None]
  - OCULAR HYPERAEMIA [None]
